FAERS Safety Report 9557185 (Version 1)
Quarter: 2013Q3

REPORT INFORMATION
  Report Type: Spontaneous
  Country: US (occurrence: None)
  Receive Date: 20130724
  Receipt Date: 20130724
  Transmission Date: 20140515
  Serious: Yes (Other)
  Sender: FDA-Public Use
  Company Number: PHEH2013US007442

PATIENT
  Sex: Female

DRUGS (3)
  1. GILENYA (FINGOLIMOD) CAPSULE, 0.5MG [Suspect]
     Indication: MULTIPLE SCLEROSIS
     Route: 048
     Dates: start: 20121129, end: 20130327
  2. PREDONINE (PREDNISOLONE) PER ORAL NOS [Concomitant]
  3. ZOLPIDEM [Concomitant]

REACTIONS (3)
  - Liver function test abnormal [None]
  - Alanine aminotransferase increased [None]
  - Blood alkaline phosphatase increased [None]
